FAERS Safety Report 8547362-1 (Version None)
Quarter: 2012Q3

REPORT INFORMATION
  Report Type: 
  Country: None (occurrence: None)
  Receive Date: 20120727
  Receipt Date: 20120322
  Transmission Date: 20120928
  Serious: No
  Sender: FDA-Public Use
  Company Number: US-ASTRAZENECA-2012SE19623

PATIENT

DRUGS (1)
  1. SEROQUEL [Suspect]
     Route: 064

REACTIONS (1)
  - AMPHETAMINES POSITIVE [None]
